FAERS Safety Report 8574824-3 (Version None)
Quarter: 2012Q3

REPORT INFORMATION
  Report Type: 
  Country: None (occurrence: None)
  Receive Date: 20120807
  Receipt Date: 20120801
  Transmission Date: 20120928
  Serious: Yes (Hospitalization, Other)
  Sender: FDA-Public Use
  Company Number: IT-GENZYME-CAMP-1002295

PATIENT
  Sex: Male

DRUGS (16)
  1. MABCAMPATH [Suspect]
     Indication: CHRONIC LYMPHOCYTIC LEUKAEMIA
     Dosage: 20 MG, QD
     Route: 058
     Dates: start: 20120109, end: 20120111
  2. CYCLOPHOSPHAMIDE [Suspect]
     Indication: CHRONIC LYMPHOCYTIC LEUKAEMIA
     Dosage: 285 MG, QD
     Route: 042
     Dates: start: 20120109, end: 20120111
  3. DEXAMETHASONE SODIUM PHOSPHATE [Concomitant]
     Dosage: 40 MG, QD
     Route: 065
  4. OMEPRAZOLE/SODIUM BICARBONATE [Concomitant]
     Indication: PRODUCT USED FOR UNKNOWN INDICATION
     Dosage: UNK
     Route: 048
  5. FILGRASTIM [Concomitant]
     Indication: PRODUCT USED FOR UNKNOWN INDICATION
     Dosage: 1 DF, UNK
     Route: 058
     Dates: start: 20120117, end: 20120120
  6. LEVOFLOXACIN [Concomitant]
     Indication: PRODUCT USED FOR UNKNOWN INDICATION
     Dosage: 500 MG, UNK
     Route: 048
  7. DECADRON PHOSPHATE [Concomitant]
     Indication: PROPHYLAXIS
     Dosage: 40 MG, QD
     Route: 042
     Dates: start: 20120117, end: 20120120
  8. FLUDARABINE PHOSPHATE [Suspect]
     Indication: CHRONIC LYMPHOCYTIC LEUKAEMIA
     Dosage: 38 MG, QD
     Route: 042
     Dates: start: 20120109, end: 20120111
  9. RED BLOOD CELLS [Concomitant]
     Indication: PRODUCT USED FOR UNKNOWN INDICATION
     Dosage: 2 U, ONCE
     Route: 065
     Dates: start: 20120111, end: 20120111
  10. FLECAINIDE ACETATE [Concomitant]
     Indication: ATRIAL FIBRILLATION
     Dosage: 60 MG, UNK
     Route: 048
  11. RED BLOOD CELLS [Concomitant]
     Dosage: 1 U, ONCE
     Route: 065
     Dates: start: 20120117, end: 20120117
  12. DEXAMETHASONE [Concomitant]
     Indication: PRODUCT USED FOR UNKNOWN INDICATION
     Dosage: 40 MG, ONCE
     Route: 042
  13. ACYCLOVIR [Concomitant]
     Indication: PRODUCT USED FOR UNKNOWN INDICATION
     Dosage: 800 MG, UNK
     Route: 048
     Dates: start: 20120111, end: 20120122
  14. IDROPLURIVIT [Concomitant]
     Indication: PRODUCT USED FOR UNKNOWN INDICATION
     Dosage: 1 DF, UNK
     Route: 048
  15. DEXAMETHASONE SODIUM PHOSPHATE [Concomitant]
     Indication: PROPHYLAXIS
     Dosage: 40 MG, QD
     Route: 030
     Dates: start: 20120118, end: 20120120
  16. FOLINA [Concomitant]
     Indication: PRODUCT USED FOR UNKNOWN INDICATION
     Dosage: 5 MG, UNK
     Route: 048

REACTIONS (7)
  - ABDOMINAL PAIN UPPER [None]
  - ATRIAL FIBRILLATION [None]
  - HYPERAEMIA [None]
  - OESOPHAGEAL CANDIDIASIS [None]
  - ORAL CANDIDIASIS [None]
  - CYTOMEGALOVIRUS INFECTION [None]
  - BLOOD LACTATE DEHYDROGENASE INCREASED [None]
